FAERS Safety Report 6892535-7 (Version None)
Quarter: 2010Q3

REPORT INFORMATION
  Report Type: 
  Country: None (occurrence: None)
  Receive Date: 20100731
  Receipt Date: 20080812
  Transmission Date: 20110219
  Serious: No
  Sender: FDA-Public Use
  Company Number: US-PFIZER INC-2008055287

PATIENT
  Sex: Female
  Weight: 37.272 kg

DRUGS (3)
  1. FLAGYL [Suspect]
     Indication: CROHN'S DISEASE
     Dates: start: 20040101, end: 20051001
  2. FLAGYL [Suspect]
     Indication: INFLAMMATORY BOWEL DISEASE
  3. BACTRIM [Concomitant]

REACTIONS (3)
  - HYPOAESTHESIA [None]
  - NEUROPATHY PERIPHERAL [None]
  - PARAESTHESIA [None]
